FAERS Safety Report 13944323 (Version 1)
Quarter: 2017Q3

REPORT INFORMATION
  Report Type: Spontaneous
  Country: US (occurrence: US)
  Receive Date: 20170907
  Receipt Date: 20170907
  Transmission Date: 20171128
  Serious: No
  Sender: FDA-Public Use
  Company Number: US-ROCHE-1293576

PATIENT
  Sex: Female

DRUGS (1)
  1. RITUXAN [Suspect]
     Active Substance: RITUXIMAB
     Indication: RHEUMATOID ARTHRITIS
     Dosage: 02/OCT/2013, HE RECEIVED LAST INFUSION WITH RITUXIMAB
     Route: 065

REACTIONS (5)
  - Abdominal discomfort [Unknown]
  - Flatulence [Unknown]
  - Staphylococcal infection [Recovered/Resolved]
  - Abdominal pain lower [Unknown]
  - Ear infection [Recovered/Resolved]
